FAERS Safety Report 8064665-8 (Version None)
Quarter: 2012Q1

REPORT INFORMATION
  Report Type: 
  Country: None (occurrence: None)
  Receive Date: 20120123
  Receipt Date: 20120113
  Transmission Date: 20120608
  Serious: Yes (Other)
  Sender: FDA-Public Use
  Company Number: US-ASTRAZENECA-2012SE00984

PATIENT
  Age: 62 Year
  Sex: Female

DRUGS (1)
  1. NEXIUM [Suspect]
     Route: 048

REACTIONS (7)
  - POST-TRAUMATIC STRESS DISORDER [None]
  - ACCIDENT [None]
  - AMNESIA [None]
  - MEMORY IMPAIRMENT [None]
  - BARRETT'S OESOPHAGUS [None]
  - PRECANCEROUS CELLS PRESENT [None]
  - BRONCHITIS [None]
